FAERS Safety Report 14823549 (Version 1)
Quarter: 2018Q2

REPORT INFORMATION
  Report Type: Spontaneous
  Country: FR (occurrence: FR)
  Receive Date: 20180428
  Receipt Date: 20180428
  Transmission Date: 20180711
  Serious: Yes (Other)
  Sender: FDA-Public Use
  Company Number: FR-ROCHE-2115745

PATIENT
  Age: 20 Year
  Sex: Female

DRUGS (2)
  1. BILASKA [Concomitant]
     Active Substance: BILASTINE
     Indication: URTICARIA CHRONIC
     Dosage: 20 MG, UNK
     Route: 048
     Dates: start: 20170627
  2. XOLAIR [Suspect]
     Active Substance: OMALIZUMAB
     Indication: URTICARIA CHRONIC
     Route: 058
     Dates: start: 20170627, end: 201712

REACTIONS (3)
  - Weight decreased [Recovered/Resolved]
  - Suicidal ideation [Recovered/Resolved]
  - Depression [Recovered/Resolved]

NARRATIVE: CASE EVENT DATE: 20170627
